FAERS Safety Report 5001449-9 (Version None)
Quarter: 2006Q2

REPORT INFORMATION
  Report Type: 
  Country: None (occurrence: None)
  Receive Date: 20060512
  Receipt Date: 20060424
  Transmission Date: 20061013
  Serious: Yes (Hospitalization)
  Sender: FDA-Public Use
  Company Number: US-MERCK-0604USA03824

PATIENT
  Age: 52 Year
  Sex: Male

DRUGS (1)
  1. VIOXX [Suspect]
     Route: 048

REACTIONS (5)
  - CHOLECYSTITIS [None]
  - EXOSTOSIS [None]
  - MYOCARDIAL INFARCTION [None]
  - PLANTAR FASCIITIS [None]
  - SINUS TACHYCARDIA [None]
